FAERS Safety Report 7108695-9 (Version None)
Quarter: 2010Q4

REPORT INFORMATION
  Report Type: 
  Country: None (occurrence: None)
  Receive Date: 20101117
  Receipt Date: 20101110
  Transmission Date: 20110411
  Serious: Yes (Death, Hospitalization)
  Sender: FDA-Public Use
  Company Number: JP-ROCHE-741597

PATIENT
  Age: 51 Year
  Sex: Female

DRUGS (20)
  1. VALGANCICLOVIR HCL [Suspect]
     Indication: CYTOMEGALOVIRUS INFECTION
     Dosage: FREQUENCY: 450 MG/DAY, EVERY OTHER DAY.
     Route: 048
     Dates: start: 20090701, end: 20090725
  2. VALGANCICLOVIR HCL [Suspect]
     Route: 048
     Dates: start: 20090727, end: 20091005
  3. FIRSTCIN [Concomitant]
     Route: 042
     Dates: start: 20090701, end: 20090708
  4. VANCOMYCIN [Concomitant]
     Route: 041
     Dates: start: 20090701, end: 20090706
  5. FOLIAMIN [Concomitant]
     Route: 048
     Dates: start: 20090711
  6. CIPROFLOXACIN [Concomitant]
     Dates: start: 20090723, end: 20090731
  7. CIPROFLOXACIN [Concomitant]
     Dates: start: 20090824, end: 20090902
  8. AMBISOME [Concomitant]
     Route: 041
     Dates: start: 20090725, end: 20090731
  9. GRAN [Concomitant]
     Route: 042
     Dates: start: 20090828
  10. MAXIPIME [Concomitant]
     Route: 042
     Dates: start: 20090926, end: 20090928
  11. PREDNISOLONE [Concomitant]
     Route: 048
     Dates: end: 20090709
  12. PREDNISOLONE [Concomitant]
     Route: 048
     Dates: start: 20090710, end: 20090723
  13. PREDNISOLONE [Concomitant]
     Route: 048
     Dates: start: 20090724, end: 20091007
  14. PROGRAF [Concomitant]
     Route: 048
     Dates: end: 20091007
  15. NEUTROGIN [Concomitant]
     Route: 058
     Dates: end: 20090827
  16. VENOGLOBULIN [Concomitant]
     Dosage: PRN
     Route: 042
  17. URSO 250 [Concomitant]
     Route: 048
  18. EXJADE [Concomitant]
     Route: 048
  19. ITRIZOLE [Concomitant]
     Dates: end: 20090724
  20. NOVORAPID [Concomitant]
     Route: 058

REACTIONS (2)
  - PANCYTOPENIA [None]
  - PNEUMONIA [None]
